FAERS Safety Report 7206427-7 (Version None)
Quarter: 2010Q4

REPORT INFORMATION
  Report Type: 
  Country: None (occurrence: None)
  Receive Date: 20101221
  Receipt Date: 20101210
  Transmission Date: 20110411
  Serious: Yes (Hospitalization)
  Sender: FDA-Public Use
  Company Number: TRP_07448_2010

PATIENT
  Age: 8 Year
  Sex: Female

DRUGS (3)
  1. AMPHOTERICIN B [Suspect]
     Indication: CUTANEOUS LEISHMANIASIS
     Dosage: 0.7 MG/KG PER DAY FOR 6 DAYS; INTRAVENOUS (NOT OTHERWISE SPECIFIED)
     Route: 042
  2. AMPHOTERICIN B, LIPOSOME (LIPOSOMAL) [Suspect]
     Indication: CUTANEOUS LEISHMANIASIS
     Dosage: DF
  3. FLUCONAZOLE [Suspect]
     Indication: CUTANEOUS LEISHMANIASIS
     Dosage: 5 MG/KG QD, 1-2 MONTHS, ORAL
     Route: 048

REACTIONS (8)
  - DECREASED APPETITE [None]
  - DRUG TOXICITY [None]
  - HYPERPHOSPHATAEMIA [None]
  - HYPOMAGNESAEMIA [None]
  - IMPAIRED HEALING [None]
  - NO THERAPEUTIC RESPONSE [None]
  - PYREXIA [None]
  - RENAL IMPAIRMENT [None]
